FAERS Safety Report 9949496 (Version 2)
Quarter: 2014Q2

REPORT INFORMATION
  Report Type: Spontaneous
  Country: US (occurrence: US)
  Receive Date: 20140304
  Receipt Date: 20140409
  Transmission Date: 20141212
  Serious: No
  Sender: FDA-Public Use
  Company Number: US-TEVA-466413USA

PATIENT
  Age: 19 Year
  Sex: Female
  Weight: 61.29 kg

DRUGS (2)
  1. PLAN B ONE-STEP [Suspect]
     Indication: POST COITAL CONTRACEPTION
     Dosage: 1.5 MILLIGRAM DAILY;
     Route: 048
     Dates: start: 20140128, end: 20140128
  2. CONTRACEPTIVES NOS [Concomitant]
     Indication: CONTRACEPTION
     Route: 048

REACTIONS (1)
  - Menstruation delayed [Recovered/Resolved]
